FAERS Safety Report 19962820 (Version 2)
Quarter: 2023Q1

REPORT INFORMATION
  Report Type: Spontaneous
  Country: GB (occurrence: GB)
  Receive Date: 20211018
  Receipt Date: 20230116
  Transmission Date: 20230417
  Serious: Yes (Other)
  Sender: FDA-Public Use
  Company Number: GB-MHRA-EYC 00262369

PATIENT
  Age: 54 Year
  Sex: Female

DRUGS (2)
  1. AMOXICILLIN [Suspect]
     Active Substance: AMOXICILLIN
     Indication: Laryngitis
     Dosage: UNK
     Route: 048
  2. TRIHEXYPHENIDYL [Suspect]
     Active Substance: TRIHEXYPHENIDYL
     Indication: Dystonia
     Dosage: UNK
     Route: 048

REACTIONS (4)
  - Headache [Unknown]
  - Dizziness [Unknown]
  - Malaise [Unknown]
  - Hypokinesia [Unknown]
